FAERS Safety Report 7999404-X (Version None)
Quarter: 2011Q4

REPORT INFORMATION
  Report Type: 
  Country: None (occurrence: None)
  Receive Date: 20111221
  Receipt Date: 20111213
  Transmission Date: 20120403
  Serious: Yes (Hospitalization)
  Sender: FDA-Public Use
  Company Number: IT-ELI_LILLY_AND_COMPANY-IT201112003637

PATIENT
  Sex: Male

DRUGS (2)
  1. RAMIPRIL [Concomitant]
     Indication: HYPERTENSIVE HEART DISEASE
     Dosage: 5 MG, UNKNOWN
     Route: 048
     Dates: start: 20090101, end: 20090317
  2. BYETTA [Suspect]
     Indication: TYPE 2 DIABETES MELLITUS
     Dosage: 10 UG, QD
     Route: 058
     Dates: start: 20081217, end: 20090317

REACTIONS (3)
  - CHRONIC OBSTRUCTIVE PULMONARY DISEASE [None]
  - CARDIAC ASTHMA [None]
  - CARDIAC FAILURE CONGESTIVE [None]
